FAERS Safety Report 9068719 (Version 1)
Quarter: 2013Q1

REPORT INFORMATION
  Report Type: Spontaneous
  Country: US (occurrence: US)
  Receive Date: 20130215
  Receipt Date: 20130215
  Transmission Date: 20140127
  Serious: Yes (Other)
  Sender: FDA-Public Use
  Company Number: US-AMGEN-USASP2013009417

PATIENT
  Age: 66 Year
  Sex: Female
  Weight: 72.56 kg

DRUGS (5)
  1. ENBREL [Suspect]
     Indication: PSORIATIC ARTHROPATHY
     Dosage: 25 MG, 2 TIMES/WK
     Dates: start: 2007
  2. ARTHROTEC [Suspect]
     Indication: PSORIATIC ARTHROPATHY
     Dosage: 75/200 MG/MCG BID
     Route: 048
  3. LYRICA [Suspect]
     Indication: FIBROMYALGIA
     Dosage: 25 MG, QD
     Route: 048
     Dates: start: 2007
  4. CALCIUM [Concomitant]
     Dosage: UNK
  5. VITAMINS                           /00067501/ [Concomitant]
     Dosage: UNK

REACTIONS (3)
  - Muscle rupture [Unknown]
  - Muscle disorder [Unknown]
  - Fibromyalgia [Unknown]
